FAERS Safety Report 9388638 (Version 2)
Quarter: 2013Q3

REPORT INFORMATION
  Report Type: Report from Study
  Country: US (occurrence: US)
  Receive Date: 20130708
  Receipt Date: 20130809
  Transmission Date: 20140515
  Serious: Yes (Life-Threatening, Hospitalization, Other)
  Sender: FDA-Public Use
  Company Number: US-ACTELION-A-US2013-85213

PATIENT
  Age: 87 Year
  Sex: Female

DRUGS (18)
  1. TRACLEER [Suspect]
     Indication: PULMONARY ARTERIAL HYPERTENSION
     Dosage: UNK
     Route: 048
  2. ADCIRCA [Concomitant]
  3. COREG [Concomitant]
     Dosage: 25 MG, BID
  4. LISINOPRIL [Concomitant]
     Dosage: 20 MG, BID
  5. LASIX [Concomitant]
     Dosage: 20 MG, QD
  6. LIPITOR [Concomitant]
     Dosage: 10 QHS
  7. COUMADINE [Concomitant]
  8. AMLODIPINE [Concomitant]
  9. SERTRALINE [Concomitant]
  10. MULTAQ [Concomitant]
     Dosage: 400 MG, BID
  11. DIOVAN [Concomitant]
  12. METHIMAZOLE [Concomitant]
  13. CLONIDINE [Concomitant]
  14. METFORMIN [Concomitant]
  15. MIRTAZAPINE [Concomitant]
  16. NASONEX [Concomitant]
  17. VITAMIN D [Concomitant]
  18. LUNESTA [Concomitant]

REACTIONS (14)
  - Pulmonary mass [Unknown]
  - Acute myocardial infarction [Unknown]
  - Troponin increased [Unknown]
  - Renal failure acute [Unknown]
  - Musculoskeletal pain [Unknown]
  - Atrial fibrillation [Unknown]
  - Flank pain [Unknown]
  - Confusional state [Unknown]
  - Tachycardia [Recovering/Resolving]
  - Thyrotoxic crisis [Recovering/Resolving]
  - Musculoskeletal chest pain [Recovering/Resolving]
  - Nausea [Unknown]
  - Vomiting [Unknown]
  - Drug dose omission [Unknown]
